FAERS Safety Report 7270064-9 (Version None)
Quarter: 2010Q4

REPORT INFORMATION
  Report Type: 
  Country: None (occurrence: None)
  Receive Date: 20101130
  Receipt Date: 20090410
  Transmission Date: 20110411
  Serious: Yes (Hospitalization)
  Sender: FDA-Public Use
  Company Number: 2009-194897-NL

PATIENT
  Age: 48 Year
  Sex: Female
  Weight: 77.1115 kg

DRUGS (4)
  1. NUVARING [Suspect]
     Indication: PREMENSTRUAL SYNDROME
     Dates: start: 20060701, end: 20070320
  2. EFFEXOR [Concomitant]
  3. GEODON [Concomitant]
  4. TRAZODONE HCL [Concomitant]

REACTIONS (1)
  - DEEP VEIN THROMBOSIS [None]
